FAERS Safety Report 6016447-6 (Version None)
Quarter: 2008Q4

REPORT INFORMATION
  Report Type: 
  Country: None (occurrence: None)
  Receive Date: 20081222
  Receipt Date: 20081210
  Transmission Date: 20090506
  Serious: Yes (Death)
  Sender: FDA-Public Use
  Company Number: US-SANOFI-SYNTHELABO-A03200803486

PATIENT
  Sex: Female

DRUGS (6)
  1. PLAVIX [Suspect]
     Indication: CORONARY ARTERY DISEASE
     Route: 048
     Dates: start: 20080326
  2. PLAVIX [Suspect]
     Indication: CARDIAC DISORDER
     Route: 048
     Dates: start: 20080326
  3. VERAPAMIL [Concomitant]
     Indication: CARDIAC DISORDER
     Route: 065
  4. LYRICA [Concomitant]
     Indication: PAIN
     Route: 048
     Dates: start: 20080604
  5. NOVOLOG [Concomitant]
     Indication: TYPE 1 DIABETES MELLITUS
     Dosage: 8 TO 10 UNITS THREE TIMES DAILY
     Route: 065
     Dates: start: 20071109
  6. LANTUS [Concomitant]
     Indication: TYPE 1 DIABETES MELLITUS
     Route: 065
     Dates: start: 20071109

REACTIONS (1)
  - DEATH [None]
